FAERS Safety Report 18536771 (Version 1)
Quarter: 2020Q4

REPORT INFORMATION
  Report Type: Spontaneous
  Country: IN (occurrence: IN)
  Receive Date: 20201124
  Receipt Date: 20201124
  Transmission Date: 20210114
  Serious: Yes (Other)
  Sender: FDA-Public Use
  Company Number: IN-CADILA HEALTHCARE LIMITED-IN-ZYDUS-058211

PATIENT

DRUGS (3)
  1. ALCOHOL. [Concomitant]
     Active Substance: ALCOHOL
     Indication: PRODUCT USED FOR UNKNOWN INDICATION
     Dosage: UNK
     Dates: start: 20190305
  2. AMLODIPINE [Suspect]
     Active Substance: AMLODIPINE BESYLATE
     Indication: PRODUCT USED FOR UNKNOWN INDICATION
     Dosage: 5 MILLIGRAM 30 TABLET
     Route: 065
  3. ATENOLOL. [Suspect]
     Active Substance: ATENOLOL
     Indication: PRODUCT USED FOR UNKNOWN INDICATION
     Dosage: 50 MILLIGRAM 30 TABLETS
     Route: 065
     Dates: start: 20190305

REACTIONS (6)
  - Sepsis [Unknown]
  - Pneumonia aspiration [Unknown]
  - Hypokalaemia [Unknown]
  - Overdose [Unknown]
  - Hypoglycaemia [Unknown]
  - Toxicity to various agents [Unknown]
